FAERS Safety Report 6613805-3 (Version None)
Quarter: 2010Q1

REPORT INFORMATION
  Report Type: 
  Country: None (occurrence: None)
  Receive Date: 20100304
  Receipt Date: 20100222
  Transmission Date: 20100710
  Serious: Yes (Death, Life-Threatening, Hospitalization)
  Sender: FDA-Public Use
  Company Number: US-GENZYME-CLOF-1000728

PATIENT
  Sex: Female
  Weight: 97.1 kg

DRUGS (6)
  1. CLOFARABINE [Suspect]
     Indication: MYELODYSPLASTIC SYNDROME
     Dosage: 63 MG, QDX5
     Route: 042
     Dates: start: 20090916, end: 20090920
  2. MELPHALAN [Suspect]
     Indication: MYELODYSPLASTIC SYNDROME
     Dosage: UNK UNK, UNK
     Route: 065
  3. ALEMTUZUMAB [Suspect]
     Indication: MYELODYSPLASTIC SYNDROME
     Dosage: UNK UNK, UNK
     Route: 065
  4. PEPCID [Concomitant]
     Indication: DRUG USE FOR UNKNOWN INDICATION
     Dosage: 20 MG, BID
     Route: 042
     Dates: start: 20090917
  5. MEPHYTON [Concomitant]
     Indication: DRUG USE FOR UNKNOWN INDICATION
     Dosage: 10 MG, 1X/W
     Route: 058
     Dates: start: 20090921
  6. ZOCOR [Concomitant]
     Indication: DRUG USE FOR UNKNOWN INDICATION
     Dosage: 20 MG, QD
     Route: 048
     Dates: start: 20090916

REACTIONS (3)
  - DEATH [None]
  - RENAL FAILURE [None]
  - RESPIRATORY DISTRESS [None]
